FAERS Safety Report 9454282 (Version 4)
Quarter: 2014Q4

REPORT INFORMATION
  Report Type: Spontaneous
  Country: US (occurrence: US)
  Receive Date: 20130812
  Receipt Date: 20141209
  Transmission Date: 20150529
  Serious: Yes (Hospitalization, Disabling, Other)
  Sender: FDA-Public Use
  Company Number: US-009507513-1308USA002508

PATIENT
  Sex: Female
  Weight: 75.74 kg

DRUGS (4)
  1. ALENDRONATE SODIUM. [Suspect]
     Active Substance: ALENDRONATE SODIUM
     Indication: OSTEOPENIA
     Dosage: UNK
     Route: 048
     Dates: start: 20090714, end: 20110301
  2. CALCIUM (UNSPECIFIED) (+) VITAMIN D (UNSPECIFIED) [Concomitant]
     Active Substance: CALCIUM CARBONATE\VITAMIN D
     Indication: PRODUCT USED FOR UNKNOWN INDICATION
     Dosage: UNK
     Dates: start: 1996
  3. FOSAMAX [Suspect]
     Active Substance: ALENDRONATE SODIUM
     Indication: OSTEOPENIA
     Dosage: 70 MG, QW
     Route: 048
     Dates: start: 20040312, end: 20090714
  4. VITAMINS (UNSPECIFIED) [Concomitant]
     Active Substance: VITAMINS
     Indication: PRODUCT USED FOR UNKNOWN INDICATION
     Dosage: UNK
     Dates: start: 1996

REACTIONS (15)
  - Weight increased [Unknown]
  - Carotid bruit [Unknown]
  - Femur fracture [Not Recovered/Not Resolved]
  - Low turnover osteopathy [Not Recovered/Not Resolved]
  - Atrophy [Unknown]
  - Osteoporosis [Unknown]
  - Stress fracture [Not Recovered/Not Resolved]
  - Femur fracture [Recovered/Resolved]
  - Haemorrhoids [Unknown]
  - Dyspareunia [Unknown]
  - Genital tract inflammation [Unknown]
  - Atrioventricular block first degree [Unknown]
  - Spinal compression fracture [Unknown]
  - Internal fixation of fracture [Unknown]
  - Cardiac murmur [Unknown]

NARRATIVE: CASE EVENT DATE: 200805
